FAERS Safety Report 7471073-7 (Version None)
Quarter: 2011Q2

REPORT INFORMATION
  Report Type: 
  Country: None (occurrence: None)
  Receive Date: 20110510
  Receipt Date: 20110506
  Transmission Date: 20111010
  Serious: Yes (Death, Hospitalization)
  Sender: FDA-Public Use
  Company Number: CH-BRISTOL-MYERS SQUIBB COMPANY-15639313

PATIENT
  Age: 30 Year
  Sex: Female

DRUGS (6)
  1. KEPPRA [Concomitant]
  2. YERVOY [Suspect]
     Indication: MALIGNANT MELANOMA
     Dosage: 144 MG 31JAN2011
     Route: 042
     Dates: start: 20110111, end: 20110131
  3. DEXAMETHASONE SODIUM POSPHATE [Concomitant]
  4. DIFLUCAN [Concomitant]
  5. DURAGESIC-100 [Concomitant]
  6. NEXIUM [Concomitant]

REACTIONS (2)
  - CLOSTRIDIUM DIFFICILE COLITIS [None]
  - NEOPLASM MALIGNANT [None]
